FAERS Safety Report 7224787-8 (Version None)
Quarter: 2011Q1

REPORT INFORMATION
  Report Type: 
  Country: None (occurrence: None)
  Receive Date: 20110113
  Receipt Date: 20110106
  Transmission Date: 20110831
  Serious: Yes (Hospitalization, Other)
  Sender: FDA-Public Use
  Company Number: BR-MEDIMMUNE-MEDI-0012164

PATIENT
  Sex: Female
  Weight: 7.92 kg

DRUGS (8)
  1. SYNAGIS [Suspect]
     Route: 030
     Dates: start: 20100601
  2. IPRATROPIUM BROMIDE [Concomitant]
     Indication: BRONCHOPULMONARY DYSPLASIA
  3. SPIRONOLACTONE [Concomitant]
     Indication: BRONCHOPULMONARY DYSPLASIA
  4. HYDROCHLOROTHIAZIDE [Concomitant]
     Indication: BRONCHOPULMONARY DYSPLASIA
  5. SALBUTAMOL SULFATE [Concomitant]
     Indication: BRONCHOPULMONARY DYSPLASIA
  6. FLUTICASONE PROPIONATE [Concomitant]
     Indication: BRONCHOPULMONARY DYSPLASIA
  7. SYNAGIS [Suspect]
     Indication: BRONCHOPULMONARY DYSPLASIA
  8. FILNEDAFIL [Concomitant]
     Indication: BRONCHOPULMONARY DYSPLASIA

REACTIONS (3)
  - BRONCHIOLITIS [None]
  - PULMONARY CONGESTION [None]
  - CYANOSIS [None]
